FAERS Safety Report 8779958 (Version 1)
Quarter: 2012Q4

REPORT INFORMATION
  Report Type: Spontaneous
  Country: US (occurrence: None)
  Receive Date: 20120905
  Receipt Date: 20120905
  Transmission Date: 20130627
  Serious: Yes (Other)
  Sender: FDA-Public Use
  Company Number: None

PATIENT
  Age: 34 Year
  Sex: Male
  Weight: 74.84 kg

DRUGS (1)
  1. VYVANSE [Suspect]

REACTIONS (4)
  - Completed suicide [None]
  - Major depression [None]
  - Negativism [None]
  - Antisocial behaviour [None]
